FAERS Safety Report 21937286 (Version 1)
Quarter: 2023Q1

REPORT INFORMATION
  Report Type: Spontaneous
  Country: PR (occurrence: PR)
  Receive Date: 20230201
  Receipt Date: 20230201
  Transmission Date: 20230418
  Serious: Yes (Other)
  Sender: FDA-Public Use
  Company Number: PR-AMGEN-PRISP2023014243

PATIENT
  Sex: Female

DRUGS (2)
  1. NPLATE [Suspect]
     Active Substance: ROMIPLOSTIM
     Indication: Immune thrombocytopenia
     Dosage: UNK, QWK
     Route: 065
     Dates: start: 20211219, end: 2022
  2. NPLATE [Suspect]
     Active Substance: ROMIPLOSTIM
     Indication: Autoimmune haemolytic anaemia
     Dosage: UNK, QWK
     Route: 065
     Dates: start: 20230102

REACTIONS (1)
  - Thrombocytopenia [Unknown]

NARRATIVE: CASE EVENT DATE: 20221201
